FAERS Safety Report 5131941-8 (Version None)
Quarter: 2006Q4

REPORT INFORMATION
  Report Type: 
  Country: None (occurrence: None)
  Receive Date: 20061016
  Receipt Date: 20061003
  Transmission Date: 20070319
  Serious: Yes (Death)
  Sender: FDA-Public Use
  Company Number: 2006114061

PATIENT
  Age: 32 Year
  Sex: Male

DRUGS (8)
  1. GEODON [Suspect]
     Indication: SCHIZOPHRENIA
     Dosage: 160 MG (80 MG, 2 IN 1 D)
     Dates: end: 20060905
  2. CLOZARIL [Concomitant]
  3. HALDOL [Concomitant]
  4. PAXIL [Concomitant]
  5. TOPAMAX [Concomitant]
  6. GLIPIZIDE [Concomitant]
  7. LISINOPRIL [Concomitant]
  8. ALL OTHER THERAPEUTIC PRODUCTS (ALL OTHER THERAPEUTIC PRODUCTS) [Concomitant]

REACTIONS (1)
  - DEATH [None]
